FAERS Safety Report 4289135-4 (Version None)
Quarter: 2004Q1

REPORT INFORMATION
  Report Type: 
  Country: None (occurrence: None)
  Receive Date: 20040210
  Receipt Date: 20040130
  Transmission Date: 20041129
  Serious: Yes (Hospitalization)
  Sender: FDA-Public Use
  Company Number: PHFR2004GB00854

PATIENT
  Age: 65 Year
  Sex: Female

DRUGS (2)
  1. CLOZARIL [Suspect]
     Indication: SCHIZOPHRENIA
     Dosage: 300MG/DAY
     Route: 048
     Dates: start: 20020612, end: 20040118
  2. CLOZARIL [Suspect]
     Dosage: 900MG/OVERDOSE
     Route: 048

REACTIONS (5)
  - COLONIC STENOSIS [None]
  - DEHYDRATION [None]
  - DIARRHOEA [None]
  - OVERDOSE [None]
  - RENAL IMPAIRMENT [None]
